FAERS Safety Report 16936397 (Version 1)
Quarter: 2019Q4

REPORT INFORMATION
  Report Type: Spontaneous
  Country: ES (occurrence: ES)
  Receive Date: 20191018
  Receipt Date: 20191018
  Transmission Date: 20200122
  Serious: Yes (Life-Threatening, Hospitalization)
  Sender: FDA-Public Use
  Company Number: ES-GALDERMA-ES19061539

PATIENT
  Age: 47 Year
  Sex: Female

DRUGS (9)
  1. CYCLOPHOSPHAMIDE. [Concomitant]
     Active Substance: CYCLOPHOSPHAMIDE
     Indication: PRIMARY AMYLOIDOSIS
     Route: 065
  2. DEXAMETHASONE. [Suspect]
     Active Substance: DEXAMETHASONE
     Indication: PRIMARY AMYLOIDOSIS
     Route: 065
  3. SEPTRIN [Concomitant]
     Active Substance: SULFAMETHOXAZOLE\TRIMETHOPRIM
     Indication: PRIMARY AMYLOIDOSIS
     Dosage: 800/160
     Route: 065
  4. PROPOFOL. [Concomitant]
     Active Substance: PROPOFOL
     Indication: ANALGESIC THERAPY
     Dosage: 2%
     Route: 065
  5. VELCADE [Concomitant]
     Active Substance: BORTEZOMIB
     Indication: PRIMARY AMYLOIDOSIS
     Route: 065
  6. ACTOCORTIN [Concomitant]
     Indication: PRIMARY AMYLOIDOSIS
     Dosage: 20 MG
     Route: 065
  7. AMOXICILLIN W/CLAVULANIC ACID [Concomitant]
     Active Substance: AMOXICILLIN\CLAVULANIC ACID
     Indication: PRIMARY AMYLOIDOSIS
     Dosage: 875/125
     Route: 065
  8. DOXYCYCLINE. [Suspect]
     Active Substance: DOXYCYCLINE
     Indication: PRIMARY AMYLOIDOSIS
     Route: 065
  9. ACICLOVIR [Concomitant]
     Active Substance: ACYCLOVIR
     Indication: PRIMARY AMYLOIDOSIS
     Dosage: 250 MG
     Route: 065

REACTIONS (6)
  - Seizure [Unknown]
  - Respiratory arrest [Unknown]
  - Pancreatitis [Unknown]
  - Biliary colic [Unknown]
  - Hemiplegia [Unknown]
  - Product use in unapproved indication [Recovered/Resolved]
